FAERS Safety Report 9686078 (Version 1)
Quarter: 2013Q4

REPORT INFORMATION
  Report Type: Spontaneous
  Country: US (occurrence: US)
  Receive Date: 20131113
  Receipt Date: 20131113
  Transmission Date: 20140711
  Serious: No
  Sender: FDA-Public Use
  Company Number: US-ALLERGAN-1216933US

PATIENT
  Age: 70 Year
  Sex: Male

DRUGS (3)
  1. COMBIGAN[R] [Suspect]
     Indication: INTRAOCULAR PRESSURE INCREASED
     Dosage: 2 GTT, SINGLE
     Route: 047
     Dates: start: 20121203, end: 20121203
  2. COMBIGAN[R] [Suspect]
     Dosage: 2 GTT, QHS
     Route: 047
     Dates: start: 201210, end: 201210
  3. UNSPECIFIED MEDICAITONS FOLLOWING QUADRUPLE BYPASS SURGERY [Concomitant]
     Indication: PRODUCT USED FOR UNKNOWN INDICATION

REACTIONS (8)
  - Skin irritation [Recovered/Resolved]
  - Eye swelling [Recovered/Resolved]
  - Skin exfoliation [Recovered/Resolved]
  - Skin irritation [Unknown]
  - Erythema [Unknown]
  - Periorbital oedema [Unknown]
  - Eye irritation [Unknown]
  - Eye irritation [Recovered/Resolved]
